FAERS Safety Report 18116035 (Version 3)
Quarter: 2020Q4

REPORT INFORMATION
  Report Type: Spontaneous
  Country: US (occurrence: US)
  Receive Date: 20200805
  Receipt Date: 20201022
  Transmission Date: 20210113
  Serious: Yes (Other)
  Sender: FDA-Public Use
  Company Number: US-GILEAD-2020-0488543

PATIENT
  Sex: Male
  Weight: 61.22 kg

DRUGS (61)
  1. VIREAD [Suspect]
     Active Substance: TENOFOVIR DISOPROXIL FUMARATE
     Indication: HIV INFECTION
     Dosage: UNK
     Route: 048
     Dates: start: 2001, end: 2008
  2. ACTONEL [Concomitant]
     Active Substance: RISEDRONATE SODIUM
  3. CELECOXIB. [Concomitant]
     Active Substance: CELECOXIB
  4. CLOPIDOGREL [Concomitant]
     Active Substance: CLOPIDOGREL BISULFATE
  5. JUBLIA [Concomitant]
     Active Substance: EFINACONAZOLE
  6. NORVIR [Concomitant]
     Active Substance: RITONAVIR
  7. PREDNISONE. [Concomitant]
     Active Substance: PREDNISONE
  8. ISENTRESS [Concomitant]
     Active Substance: RALTEGRAVIR POTASSIUM
  9. LIDOCAINE. [Concomitant]
     Active Substance: LIDOCAINE
  10. TRAMADOL. [Concomitant]
     Active Substance: TRAMADOL
  11. AMITRIPTYLINE [Concomitant]
     Active Substance: AMITRIPTYLINE
  12. ASPIRIN (E.C.) [Concomitant]
     Active Substance: ASPIRIN
  13. ESCITALOPRAM [Concomitant]
     Active Substance: ESCITALOPRAM OXALATE
  14. HYDROXYZINE [Concomitant]
     Active Substance: HYDROXYZINE HYDROCHLORIDE
  15. IBUPROFEN. [Concomitant]
     Active Substance: IBUPROFEN
  16. LEXAPRO [Concomitant]
     Active Substance: ESCITALOPRAM OXALATE
  17. MOBISYL [Concomitant]
     Active Substance: TROLAMINE SALICYLATE
  18. PNEUMOVAX 23 [Concomitant]
     Active Substance: PNEUMOCOCCAL VACCINE, POLYVALENT 23
  19. PREZISTA [Concomitant]
     Active Substance: DARUNAVIR ETHANOLATE
  20. TRAZODONE [Concomitant]
     Active Substance: TRAZODONE HYDROCHLORIDE
  21. BENZONATATE. [Concomitant]
     Active Substance: BENZONATATE
  22. CYCLOBENZAPRINE. [Concomitant]
     Active Substance: CYCLOBENZAPRINE
  23. HYDROCODONE [Concomitant]
     Active Substance: HYDROCODONE
  24. LEVOFLOXACIN. [Concomitant]
     Active Substance: LEVOFLOXACIN
  25. PEG 3350 [Concomitant]
     Active Substance: POLYETHYLENE GLYCOL 3350
  26. Q-TUSSIN [Concomitant]
     Active Substance: GUAIFENESIN
  27. TRIUMEQ [Concomitant]
     Active Substance: ABACAVIR SULFATE\DOLUTEGRAVIR SODIUM\LAMIVUDINE
  28. ATRIPLA [Suspect]
     Active Substance: EFAVIRENZ\EMTRICITABINE\TENOFOVIR DISOPROXIL FUMARATE
     Indication: HIV INFECTION
     Dosage: UNK
     Route: 048
     Dates: start: 20081229, end: 20100403
  29. BUTRANS [Concomitant]
     Active Substance: BUPRENORPHINE
  30. CARISOPRODOL. [Concomitant]
     Active Substance: CARISOPRODOL
  31. FLUVIRIN A [Concomitant]
  32. KETOROLAC [Concomitant]
     Active Substance: KETOROLAC TROMETHAMINE
  33. LORAZEPAM. [Concomitant]
     Active Substance: LORAZEPAM
  34. OSELTAMIVIR [Concomitant]
     Active Substance: OSELTAMIVIR
  35. OXYCODONE [Concomitant]
     Active Substance: OXYCODONE
  36. VALTREX [Concomitant]
     Active Substance: VALACYCLOVIR HYDROCHLORIDE
  37. VITAMIN C [Concomitant]
     Active Substance: ASCORBIC ACID
  38. ACETAMINOPHEN. [Concomitant]
     Active Substance: ACETAMINOPHEN
  39. AMOX+AC CLAV SAN [AMOXICILLIN SODIUM;CLAVULANATE POTASSIUM] [Concomitant]
  40. CEPHALEXIN AMEL [Concomitant]
     Active Substance: CEPHALEXIN
  41. DICYCLOMINE [Concomitant]
     Active Substance: DICYCLOMINE HYDROCHLORIDE
  42. DULOXETINE. [Concomitant]
     Active Substance: DULOXETINE
  43. METHYLPREDNISOLONE. [Concomitant]
     Active Substance: METHYLPREDNISOLONE
  44. VOLTAREN ACTI [Concomitant]
     Active Substance: DICLOFENAC POTASSIUM
  45. WAL ITIN [Concomitant]
     Active Substance: LORATADINE
  46. TRUVADA [Suspect]
     Active Substance: EMTRICITABINE\TENOFOVIR DISOPROXIL FUMARATE
     Indication: HIV INFECTION
     Dosage: UNK
     Route: 048
     Dates: start: 20140903, end: 20150825
  47. CIPROFLOXACIN. [Concomitant]
     Active Substance: CIPROFLOXACIN
  48. CITALOPRAM [Concomitant]
     Active Substance: CITALOPRAM HYDROBROMIDE
  49. FLUCONAZOLE. [Concomitant]
     Active Substance: FLUCONAZOLE
  50. GABAPENTIN. [Concomitant]
     Active Substance: GABAPENTIN
  51. LEVAQUIN [Concomitant]
     Active Substance: LEVOFLOXACIN
  52. NAPROXEN. [Concomitant]
     Active Substance: NAPROXEN
  53. PROMETHAZINE [Concomitant]
     Active Substance: PROMETHAZINE HYDROCHLORIDE
  54. VENTOLIN [Concomitant]
     Active Substance: ALBUTEROL SULFATE
  55. ZOLPIDEM [Concomitant]
     Active Substance: ZOLPIDEM TARTRATE
  56. AZITHROMYCIN ANHYDROUS. [Concomitant]
     Active Substance: AZITHROMYCIN ANHYDROUS
  57. BUSPIRONE [Concomitant]
     Active Substance: BUSPIRONE HYDROCHLORIDE
  58. HYDROMORPHONE [Concomitant]
     Active Substance: HYDROMORPHONE
  59. MELOXICAM. [Concomitant]
     Active Substance: MELOXICAM
  60. QUETIAPINE. [Concomitant]
     Active Substance: QUETIAPINE
  61. SILENOR [Concomitant]
     Active Substance: DOXEPIN HYDROCHLORIDE

REACTIONS (8)
  - Anhedonia [Not Recovered/Not Resolved]
  - Anxiety [Not Recovered/Not Resolved]
  - Osteopenia [Not Recovered/Not Resolved]
  - Osteoporosis [Not Recovered/Not Resolved]
  - Bone density decreased [Unknown]
  - Multiple fractures [Not Recovered/Not Resolved]
  - Pain [Not Recovered/Not Resolved]
  - Emotional distress [Not Recovered/Not Resolved]

NARRATIVE: CASE EVENT DATE: 2009
